FAERS Safety Report 18769493 (Version 2)
Quarter: 2021Q3

REPORT INFORMATION
  Report Type: Spontaneous
  Country: US (occurrence: US)
  Receive Date: 20210121
  Receipt Date: 20210721
  Transmission Date: 20211014
  Serious: No
  Sender: FDA-Public Use
  Company Number: US-SA-2021SA015278

PATIENT
  Age: 52 Year
  Sex: Male

DRUGS (1)
  1. DUPILUMAB [Suspect]
     Active Substance: DUPILUMAB
     Dosage: 300 MG, QOW
     Dates: start: 202009

REACTIONS (9)
  - Dry skin [Unknown]
  - Gastrooesophageal reflux disease [Unknown]
  - Dyspnoea [Unknown]
  - Respiratory disorder [Unknown]
  - Nasopharyngitis [Unknown]
  - Skin haemorrhage [Unknown]
  - Sleep disorder [Unknown]
  - Illness [Unknown]
  - Pruritus [Unknown]

NARRATIVE: CASE EVENT DATE: 2020
